FAERS Safety Report 5199519-8 (Version None)
Quarter: 2006Q4

REPORT INFORMATION
  Report Type: 
  Country: None (occurrence: None)
  Receive Date: 20061229
  Receipt Date: 20061215
  Transmission Date: 20070319
  Serious: Yes (Death)
  Sender: FDA-Public Use
  Company Number: WAES 0612GBR00096

PATIENT

DRUGS (4)
  1. CLINORIL [Suspect]
     Dosage: 800 MG PO
     Route: 048
  2. EPIRUBICIN [Suspect]
     Dosage: 75 MG/M[2] IV
     Route: 042
  3. DEXAMETHASONE [Concomitant]
  4. GRANISETRON [Concomitant]

REACTIONS (4)
  - DRUG TOXICITY [None]
  - HAEMOPTYSIS [None]
  - LUNG NEOPLASM MALIGNANT [None]
  - MALIGNANT NEOPLASM PROGRESSION [None]
